FAERS Safety Report 19011829 (Version 2)
Quarter: 2022Q3

REPORT INFORMATION
  Report Type: Spontaneous
  Country: GB (occurrence: GB)
  Receive Date: 20210316
  Receipt Date: 20220924
  Transmission Date: 20221027
  Serious: Yes (Death)
  Sender: FDA-Public Use
  Company Number: None

PATIENT
  Age: 80 Year
  Sex: Male

DRUGS (31)
  1. SERTRALINE [Suspect]
     Active Substance: SERTRALINE HYDROCHLORIDE
     Indication: Depression
     Dosage: 50MG
     Route: 048
     Dates: end: 20201108
  2. FLUCLOXACILLIN [Suspect]
     Active Substance: FLUCLOXACILLIN
     Indication: Skin ulcer
     Dosage: 2G-1G
     Route: 042
     Dates: start: 20201030, end: 20201108
  3. COTRIMOXAZOLE [Suspect]
     Active Substance: SULFAMETHOXAZOLE\TRIMETHOPRIM
     Indication: Skin ulcer
     Route: 048
     Dates: start: 20201027, end: 20201030
  4. CARBOCYSTEINE [Concomitant]
     Active Substance: CARBOCYSTEINE
     Indication: Ill-defined disorder
  5. FINASTERIDE [Concomitant]
     Active Substance: FINASTERIDE
     Indication: Ill-defined disorder
     Dates: start: 20201031, end: 20201108
  6. TAMSULOSIN [Concomitant]
     Active Substance: TAMSULOSIN
     Indication: Ill-defined disorder
     Dates: start: 20201031
  7. GABAPENTIN [Concomitant]
     Active Substance: GABAPENTIN
     Dates: start: 20201031, end: 20201107
  8. DERMOL [Concomitant]
     Active Substance: BENZALKONIUM CHLORIDE\CHLORHEXIDINE HYDROCHLORIDE\ISOPROPYL MYRISTATE\PARAFFIN
  9. BECLOMETASONE, FORMOTEROL, GLYCOPYRRONIUM [Concomitant]
  10. ALBUTEROL [Concomitant]
     Active Substance: ALBUTEROL
     Dosage: 2-NEBULISERS
     Dates: start: 20201031, end: 20201119
  11. RIVAROXABAN [Concomitant]
     Active Substance: RIVAROXABAN
  12. HYDROCORTISONE [Concomitant]
     Active Substance: HYDROCORTISONE
     Dosage: 200MG IV 9/11/20
     Dates: start: 20201120
  13. BUMETANIDE [Concomitant]
     Active Substance: BUMETANIDE
     Dosage: 2MG MORNING AND 1MG LUNCH
     Dates: start: 20201031, end: 20201102
  14. ZOPICLONE [Concomitant]
     Active Substance: ZOPICLONE
  15. PREDNISOLONE [Concomitant]
     Active Substance: PREDNISOLONE
     Dates: start: 20201110, end: 20201117
  16. PERMETHRIN [Concomitant]
     Active Substance: PERMETHRIN
     Dates: start: 20201104
  17. CEFTAZIDIME [Concomitant]
     Active Substance: CEFTAZIDIME
     Dates: start: 20201115, end: 20201120
  18. OXYCODONE HYDROCHLORIDE [Concomitant]
     Active Substance: OXYCODONE HYDROCHLORIDE
     Dates: start: 20201119
  19. BISOPROLOL [Concomitant]
     Active Substance: BISOPROLOL
  20. OMEPRAZOLE [Concomitant]
     Active Substance: OMEPRAZOLE
  21. IPRATROPIUM [Concomitant]
     Active Substance: IPRATROPIUM
     Dates: start: 20201030, end: 20201109
  22. VITAMIN K [Concomitant]
     Active Substance: PHYTONADIONE
     Dates: start: 20201111, end: 20201112
  23. HALOPERIDOL [Concomitant]
     Active Substance: HALOPERIDOL
     Dosage: 13/11/20, 14/11/20-TDS, 15/11/20 TDS, 16/11/20 BD, 17/11/20 TDS, 18/11/20
     Dates: start: 20201113, end: 20201118
  24. FUROSEMIDE [Concomitant]
     Active Substance: FUROSEMIDE
     Route: 042
     Dates: start: 20201102, end: 20201105
  25. MORPHINE [Concomitant]
     Active Substance: MORPHINE
     Dates: start: 20201119
  26. CHLORPHENIRAMINE MALEATE [Concomitant]
     Active Substance: CHLORPHENIRAMINE MALEATE
     Dosage: PATIENT DROWSY NOT GIVEN
     Dates: start: 20201110
  27. ACETAMINOPHEN [Concomitant]
     Active Substance: ACETAMINOPHEN
     Dates: start: 20201120
  28. LORAZEPAM [Concomitant]
     Active Substance: LORAZEPAM
     Dates: start: 20201115, end: 20201120
  29. MIDAZOLAM [Concomitant]
     Active Substance: MIDAZOLAM
     Dates: start: 20201119
  30. CYCLIZINE [Concomitant]
     Active Substance: CYCLIZINE
     Dates: start: 20201119
  31. CODEINE [Concomitant]
     Active Substance: CODEINE
     Dosage: PRN

REACTIONS (1)
  - Drug reaction with eosinophilia and systemic symptoms [Fatal]

NARRATIVE: CASE EVENT DATE: 20201108
